FAERS Safety Report 17779080 (Version 2)
Quarter: 2020Q2

REPORT INFORMATION
  Report Type: Spontaneous
  Country: BE (occurrence: BE)
  Receive Date: 20200513
  Receipt Date: 20200520
  Transmission Date: 20200714
  Serious: Yes (Hospitalization, Disabling, Other)
  Sender: FDA-Public Use
  Company Number: BE-SA-2020SA117289

PATIENT
  Age: 64 Year
  Sex: Male

DRUGS (19)
  1. RIFAMPICIN [Suspect]
     Active Substance: RIFAMPIN
     Indication: URINARY TRACT INFECTION BACTERIAL
  2. CEFTRIAXONE. [Concomitant]
     Active Substance: CEFTRIAXONE
     Indication: ANTIBIOTIC THERAPY
  3. METHYLPREDNISOLONE. [Suspect]
     Active Substance: METHYLPREDNISOLONE
     Indication: IMMUNOSUPPRESSANT DRUG THERAPY
     Dosage: LOW-DOSE
  4. METHYLPREDNISOLONE. [Suspect]
     Active Substance: METHYLPREDNISOLONE
     Dosage: 4 MG, QD
  5. CLARITHROMYCIN. [Suspect]
     Active Substance: CLARITHROMYCIN
     Indication: URINARY TRACT INFECTION BACTERIAL
  6. TACROLIMUS. [Suspect]
     Active Substance: TACROLIMUS
     Indication: IMMUNOSUPPRESSANT DRUG THERAPY
     Dosage: UNK
  7. AZATHIOPRINE. [Suspect]
     Active Substance: AZATHIOPRINE
     Indication: ANTI-NEUTROPHIL CYTOPLASMIC ANTIBODY POSITIVE VASCULITIS
     Dosage: UNK
  8. PREDNISOLONE. [Suspect]
     Active Substance: PREDNISOLONE
     Indication: ANTI-NEUTROPHIL CYTOPLASMIC ANTIBODY POSITIVE VASCULITIS
     Dosage: UNK
  9. MYCOPHENOLATE MOFETIL. [Suspect]
     Active Substance: MYCOPHENOLATE MOFETIL
     Indication: IMMUNOSUPPRESSANT DRUG THERAPY
     Dosage: UNK
  10. CLARITHROMYCIN. [Suspect]
     Active Substance: CLARITHROMYCIN
     Indication: LOWER RESPIRATORY TRACT INFECTION
     Dosage: 1000 MG/D
  11. ETHAMBUTOL [Suspect]
     Active Substance: ETHAMBUTOL HYDROCHLORIDE
     Indication: URINARY TRACT INFECTION BACTERIAL
  12. AZATHIOPRINE. [Suspect]
     Active Substance: AZATHIOPRINE
     Dosage: SWITCHED TO AZATHIOPRINE
  13. RIFAMPICIN [Suspect]
     Active Substance: RIFAMPIN
     Indication: LOWER RESPIRATORY TRACT INFECTION
     Dosage: 600 MG/D
  14. CEFTRIAXONE. [Concomitant]
     Active Substance: CEFTRIAXONE
     Indication: EVIDENCE BASED TREATMENT
     Dosage: UNK
  15. RIFAMPICIN [Suspect]
     Active Substance: RIFAMPIN
     Indication: EVIDENCE BASED TREATMENT
  16. CLARITHROMYCIN. [Suspect]
     Active Substance: CLARITHROMYCIN
     Indication: EVIDENCE BASED TREATMENT
  17. ETHAMBUTOL [Suspect]
     Active Substance: ETHAMBUTOL HYDROCHLORIDE
     Indication: LOWER RESPIRATORY TRACT INFECTION
     Dosage: 1200 MG/D
  18. ETHAMBUTOL [Suspect]
     Active Substance: ETHAMBUTOL HYDROCHLORIDE
     Indication: EVIDENCE BASED TREATMENT
  19. TACROLIMUS. [Suspect]
     Active Substance: TACROLIMUS
     Dosage: TO REACH A TROUGH LEVEL OF 4 NG/ML

REACTIONS (13)
  - Pyrexia [Recovered/Resolved]
  - Gastrointestinal disorder [Unknown]
  - Asthenia [Recovering/Resolving]
  - Condition aggravated [Unknown]
  - Urinary tract infection bacterial [Recovering/Resolving]
  - Immune reconstitution inflammatory syndrome [Recovering/Resolving]
  - Atypical mycobacterial infection [Unknown]
  - Mycobacterial infection [Recovering/Resolving]
  - Acid fast bacilli infection [Recovering/Resolving]
  - Toxicity to various agents [Not Recovered/Not Resolved]
  - Blindness [Not Recovered/Not Resolved]
  - Lower respiratory tract infection [Unknown]
  - Cytomegalovirus infection reactivation [Unknown]
